FAERS Safety Report 5064880-1 (Version None)
Quarter: 2006Q3

REPORT INFORMATION
  Report Type: 
  Country: None (occurrence: None)
  Receive Date: 20060725
  Receipt Date: 20060710
  Transmission Date: 20061208
  Serious: Yes (Hospitalization)
  Sender: FDA-Public Use
  Company Number: US200607001479

PATIENT
  Age: 75 Year
  Sex: Female

DRUGS (5)
  1. HUMULIN U [Suspect]
     Indication: DIABETES MELLITUS
     Dosage: 42 UNITS TWO TIME PER DAY
  2. HUMULIN R [Suspect]
     Indication: DIABETES MELLITUS
     Dosage: SLIDING SCALE
  3. HUMULIN N [Suspect]
     Indication: DIABETES MELLITUS
     Dosage: 30 UNITS
     Dates: start: 20060626, end: 20060626
  4. HUMULIN L [Suspect]
     Indication: DIABETES MELLITUS
     Dosage: 30 UNITS
     Dates: start: 20060629, end: 20060629
  5. HUMULIN 70/30 [Suspect]
     Indication: DIABETES MELLITUS

REACTIONS (10)
  - ARTHRALGIA [None]
  - BURNING SENSATION [None]
  - DRUG HYPERSENSITIVITY [None]
  - FEELING ABNORMAL [None]
  - MOVEMENT DISORDER [None]
  - OEDEMA PERIPHERAL [None]
  - OPEN WOUND [None]
  - PRURITUS GENERALISED [None]
  - RASH ERYTHEMATOUS [None]
  - SURGERY [None]
